FAERS Safety Report 8923612 (Version 1)
Quarter: 2012Q4

REPORT INFORMATION
  Report Type: Spontaneous
  Country: SZ (occurrence: None)
  Receive Date: 20121115
  Receipt Date: 20121115
  Transmission Date: 20130627
  Serious: Yes (Hospitalization)
  Sender: FDA-Public Use
  Company Number: 20120676

PATIENT
  Age: 82 Year
  Sex: Male

DRUGS (4)
  1. VENOFER [Suspect]
     Indication: ANAEMIA
     Route: 042
     Dates: start: 20120727, end: 20120727
  2. ENALAPRIL [Concomitant]
  3. HYDROCHLOROTHIAZIDE [Concomitant]
  4. FUROSEMIDE [Concomitant]

REACTIONS (2)
  - Anaphylactoid reaction [None]
  - Renal failure acute [None]
